FAERS Safety Report 10404163 (Version 1)
Quarter: 2014Q1

REPORT INFORMATION
  Report Type: Spontaneous
  Country: US (occurrence: None)
  Receive Date: 20130916
  Receipt Date: 20130916
  Transmission Date: 20141002
  Serious: Yes (Other)
  Sender: FDA-Public Use
  Company Number: JPI-P-031061

PATIENT
  Age: 40 Year
  Sex: Female
  Weight: 49.9 kg

DRUGS (9)
  1. XYREM (500 MILLIGRAM/MILLILITERS, SOLUTION) (SODIUM OXYBATE) [Suspect]
     Indication: HYPERSOMNIA
     Dosage: 4.5 GM (2.25 GM, 2 IN 1 D), ORAL
     Route: 048
     Dates: start: 20081106
  2. PROPRANOLOL [Suspect]
  3. AMPHETAMINE, DEXTROAMPHETAMINE, MIXED SALTS [Concomitant]
  4. FERROUS SULFATE [Concomitant]
  5. DOCUSATE [Concomitant]
  6. BUDESONIDE (SPRAY (NOT INHALATION)) [Concomitant]
  7. AZELASTINE HYDROCHLORIDE (SPRAY (NOT INHALATION)) [Concomitant]
  8. SUMATRIPTAN SUCCINATE [Concomitant]
  9. INDAPAMIDE [Concomitant]

REACTIONS (5)
  - Blood pressure increased [None]
  - Tonsillitis [None]
  - Streptococcal infection [None]
  - Condition aggravated [None]
  - Raynaud^s phenomenon [None]
